FAERS Safety Report 10585570 (Version 1)
Quarter: 2014Q4

REPORT INFORMATION
  Report Type: Spontaneous
  Country: GB (occurrence: None)
  Receive Date: 20141113
  Receipt Date: 20141113
  Transmission Date: 20150529
  Serious: Yes (Hospitalization)
  Sender: FDA-Public Use
  Company Number: GB-DEXPHARM-20140829

PATIENT
  Age: 85 Year
  Sex: Female

DRUGS (11)
  1. LETROZOLE. [Concomitant]
     Active Substance: LETROZOLE
  2. PROPRANOLOL [Concomitant]
     Active Substance: PROPRANOLOL\PROPRANOLOL HYDROCHLORIDE
  3. DOUBLEBASE [Concomitant]
     Active Substance: ISOPROPYL MYRISTATE\PARAFFIN
  4. PARACETAMOL [Concomitant]
     Active Substance: ACETAMINOPHEN
  5. CANDESARTAN [Concomitant]
     Active Substance: CANDESARTAN
  6. CALCICHEW D3 [Concomitant]
     Active Substance: CALCIUM\CHOLECALCIFEROL
  7. COSOPT [Concomitant]
     Active Substance: DORZOLAMIDE HYDROCHLORIDE\TIMOLOL MALEATE
  8. LATANOPROST. [Concomitant]
     Active Substance: LATANOPROST
  9. DULOXETINE [Suspect]
     Active Substance: DULOXETINE
     Dosage: 2 IN 1 DAYS?DOSAGE TEXT: IN THE MORNING?20 MG  SEP. DOSAGES/INERVAL: 1 IN 1 DAYS
     Route: 048
     Dates: start: 20141015, end: 20141026
  10. SIMVASTATIN. [Concomitant]
     Active Substance: SIMVASTATIN
  11. OMEPRAZOLE. [Suspect]
     Active Substance: OMEPRAZOLE
     Dosage: IN THE MORNING, ORAL, 20 MG MILLIGRAM(S) SEP. DOSAGE/INTERVAL: 1 IN 1 DAYS
     Dates: start: 20080814, end: 20141026

REACTIONS (5)
  - Fall [None]
  - Hyponatraemia [None]
  - Unresponsive to stimuli [None]
  - Syncope [None]
  - Inappropriate antidiuretic hormone secretion [None]

NARRATIVE: CASE EVENT DATE: 20141028
